FAERS Safety Report 7238534-7 (Version None)
Quarter: 2011Q1

REPORT INFORMATION
  Report Type: 
  Country: None (occurrence: None)
  Receive Date: 20110121
  Receipt Date: 20110117
  Transmission Date: 20110831
  Serious: Yes (Death, Other)
  Sender: FDA-Public Use
  Company Number: US-B.I. PHARMACEUTICALS,INC./RIDGEFIELD-2010-BP-12030BP

PATIENT
  Sex: Female

DRUGS (3)
  1. DIOVAN [Concomitant]
     Indication: HYPERTENSION
  2. AGGRENOX [Suspect]
     Indication: TRANSIENT ISCHAEMIC ATTACK
     Dosage: DAILY DOSE: 50MG/400MG
     Route: 048
     Dates: start: 20090101, end: 20100921
  3. SYNTHROID [Concomitant]
     Indication: HYPOTHYROIDISM

REACTIONS (4)
  - RECTAL HAEMORRHAGE [None]
  - INTESTINAL PERFORATION [None]
  - BOWEL MOVEMENT IRREGULARITY [None]
  - DISSEMINATED INTRAVASCULAR COAGULATION [None]
